FAERS Safety Report 4862330-9 (Version None)
Quarter: 2005Q4

REPORT INFORMATION
  Report Type: 
  Country: None (occurrence: None)
  Receive Date: 20051221
  Receipt Date: 20050905
  Transmission Date: 20060501
  Serious: Yes (Death, Hospitalization)
  Sender: FDA-Public Use
  Company Number: FR-KINGPHARMUSA00001-K200501181

PATIENT
  Age: 81 Year
  Sex: Female

DRUGS (6)
  1. ALTACE [Suspect]
  2. FUROSEMIDE [Suspect]
     Route: 042
  3. CELECOXIB [Suspect]
  4. CIPROFLOXACIN [Suspect]
     Indication: RESPIRATORY TRACT INFECTION
  5. AMOXICILLIN AND CLAVULANATE POTASSIUM [Suspect]
     Indication: RESPIRATORY TRACT INFECTION
  6. NITROGLYCERIN [Suspect]
     Indication: CARDIAC FAILURE

REACTIONS (7)
  - BLOOD CREATININE INCREASED [None]
  - BLOOD POTASSIUM INCREASED [None]
  - CARDIAC FAILURE [None]
  - DEHYDRATION [None]
  - RENAL FAILURE ACUTE [None]
  - RESPIRATORY TRACT INFECTION [None]
  - SOMNOLENCE [None]
